FAERS Safety Report 4902539-9 (Version None)
Quarter: 2006Q1

REPORT INFORMATION
  Report Type: 
  Country: None (occurrence: None)
  Receive Date: 20060202
  Receipt Date: 20030106
  Transmission Date: 20060701
  Serious: Yes (Death, Hospitalization, Other)
  Sender: FDA-Public Use
  Company Number: WAES 0301PHL00003

PATIENT
  Age: 63 Year
  Sex: Male

DRUGS (8)
  1. COZAAR [Suspect]
     Indication: CARDIAC FAILURE CONGESTIVE
     Dosage: 50 OR 150 MG MG/1X
     Route: 048
     Dates: start: 20020523, end: 20020926
  2. COZAAR [Suspect]
     Indication: HYPERTENSION
     Dosage: 50 OR 150 MG MG/1X
     Route: 048
     Dates: start: 20020523, end: 20020926
  3. COLCHICINE [Concomitant]
  4. DIGOXIN [Concomitant]
  5. FLUTICASONE PROPIONATE (+) SALMETEROL XL [Concomitant]
  6. FUROSEMIDE [Concomitant]
  7. LOSARTAN POTASSIUM-HCTZ [Concomitant]
  8. SODIUM BICARBONATE [Concomitant]

REACTIONS (44)
  - ABDOMINAL INFECTION [None]
  - ARRHYTHMIA [None]
  - ASCITES [None]
  - BLOOD POTASSIUM DECREASED [None]
  - CARDIAC ARREST [None]
  - CARDIAC DISORDER [None]
  - CARDIAC FAILURE CONGESTIVE [None]
  - CARDIOGENIC SHOCK [None]
  - CARDIOMEGALY [None]
  - CONDITION AGGRAVATED [None]
  - CONVULSION [None]
  - DYSPNOEA [None]
  - ENTEROCOLITIS [None]
  - EXTRASYSTOLES [None]
  - GASTROENTERITIS BACTERIAL [None]
  - GENERAL PHYSICAL HEALTH DETERIORATION [None]
  - HEPATIC FAILURE [None]
  - HYPERKALAEMIA [None]
  - HYPOTENSION [None]
  - HYPOVOLAEMIA [None]
  - HYPOXIA [None]
  - ILEUS [None]
  - INCOHERENT [None]
  - INFECTION [None]
  - INTESTINAL ISCHAEMIA [None]
  - METABOLIC ALKALOSIS [None]
  - MITRAL VALVE INCOMPETENCE [None]
  - MULTI-ORGAN FAILURE [None]
  - OEDEMA PERIPHERAL [None]
  - PLEURAL EFFUSION [None]
  - PYREXIA [None]
  - QRS AXIS ABNORMAL [None]
  - RENAL FAILURE ACUTE [None]
  - RESPIRATORY FAILURE [None]
  - RESTLESSNESS [None]
  - SEPSIS [None]
  - SINUS TACHYCARDIA [None]
  - SOMNOLENCE [None]
  - SUPRAVENTRICULAR EXTRASYSTOLES [None]
  - THROMBOCYTOPENIA [None]
  - TRICUSPID VALVE INCOMPETENCE [None]
  - URATE NEPHROPATHY [None]
  - VENTRICULAR HYPOKINESIA [None]
  - YELLOW SKIN [None]
